FAERS Safety Report 8472464-8 (Version None)
Quarter: 2012Q2

REPORT INFORMATION
  Report Type: 
  Country: None (occurrence: None)
  Receive Date: 20120627
  Receipt Date: 20111103
  Transmission Date: 20120825
  Serious: No
  Sender: FDA-Public Use
  Company Number: US-AMGEN-USASP2011068486

PATIENT
  Age: 63 Year
  Sex: Male
  Weight: 79.4 kg

DRUGS (9)
  1. LIPITOR [Concomitant]
  2. TOPROL-XL [Concomitant]
  3. CLONIDINE [Concomitant]
  4. NOVASCABIN [Concomitant]
  5. PROCRIT [Suspect]
     Indication: RENAL FAILURE CHRONIC
     Dosage: 20000 IU, Q3WK
     Route: 058
     Dates: start: 20070201
  6. AZATHIOPRINE [Concomitant]
  7. MULTI-VITAMIN [Concomitant]
  8. JANUVIA [Concomitant]
  9. VITAMIN D [Concomitant]

REACTIONS (1)
  - DRUG DOSE OMISSION [None]
